FAERS Safety Report 13892297 (Version 2)
Quarter: 2017Q3

REPORT INFORMATION
  Report Type: Spontaneous
  Country: JP (occurrence: JP)
  Receive Date: 20170822
  Receipt Date: 20170828
  Transmission Date: 20171127
  Serious: Yes (Death)
  Sender: FDA-Public Use
  Company Number: JP-JNJFOC-20170818865

PATIENT
  Age: 69 Year
  Sex: Male

DRUGS (1)
  1. RISPERDAL CONSTA [Suspect]
     Active Substance: RISPERIDONE
     Indication: SCHIZOPHRENIA
     Route: 030
     Dates: start: 201102, end: 20170804

REACTIONS (2)
  - Hyperprolactinaemia [Unknown]
  - Heat illness [Fatal]

NARRATIVE: CASE EVENT DATE: 20140607
